FAERS Safety Report 7313993-X (Version None)
Quarter: 2011Q1

REPORT INFORMATION
  Report Type: 
  Country: None (occurrence: None)
  Receive Date: 20110225
  Receipt Date: 20110218
  Transmission Date: 20110831
  Serious: Yes (Hospitalization, Other)
  Sender: FDA-Public Use
  Company Number: PHHY2011FR04829

PATIENT
  Sex: Female

DRUGS (5)
  1. LEVOTHYROX [Concomitant]
     Indication: HYPOTHYROIDISM
  2. KEPPRA [Concomitant]
     Indication: FEELING ABNORMAL
     Dosage: 500 MG, QD
     Dates: start: 20090903
  3. UVEDOSE [Concomitant]
     Indication: MULTIPLE SCLEROSIS
     Dosage: UNK
  4. EXTAVIA [Suspect]
     Indication: MULTIPLE SCLEROSIS
     Dosage: 1 ML, QOD
     Route: 058
     Dates: start: 19991004, end: 20110105
  5. ACETAMINOPHEN [Concomitant]
     Indication: PROPHYLAXIS
     Dosage: UNK

REACTIONS (8)
  - MALAISE [None]
  - INSOMNIA [None]
  - BLOOD PRESSURE DECREASED [None]
  - FEELING COLD [None]
  - SYNCOPE [None]
  - VISION BLURRED [None]
  - TACHYCARDIA [None]
  - PYREXIA [None]
